FAERS Safety Report 16378078 (Version 1)
Quarter: 2019Q2

REPORT INFORMATION
  Report Type: Spontaneous
  Country: US (occurrence: US)
  Receive Date: 20190531
  Receipt Date: 20190531
  Transmission Date: 20190711
  Serious: No
  Sender: FDA-Public Use
  Company Number: US-OSMOTICA_PHARMACEUTICAL_US_LLC-POI0573201900095

PATIENT
  Age: 65 Year
  Sex: Male

DRUGS (4)
  1. OSMOLEX ER [Suspect]
     Active Substance: AMANTADINE
     Dates: start: 20190214, end: 20190214
  2. RYTARY [Concomitant]
     Active Substance: CARBIDOPA\LEVODOPA
     Indication: PRODUCT USED FOR UNKNOWN INDICATION
     Dosage: 1.25 MG AND 245 MG
     Dates: start: 20190217
  3. OSMOLEX ER [Suspect]
     Active Substance: AMANTADINE
     Indication: PARKINSON^S DISEASE
     Dates: start: 20190214
  4. OSMOLEX ER [Suspect]
     Active Substance: AMANTADINE
     Dates: start: 20190215

REACTIONS (3)
  - Insomnia [Recovered/Resolved]
  - Drug ineffective [Recovered/Resolved]
  - Off label use [Recovered/Resolved]

NARRATIVE: CASE EVENT DATE: 20190214
